FAERS Safety Report 15746965 (Version 1)
Quarter: 2018Q4

REPORT INFORMATION
  Report Type: Spontaneous
  Country: US (occurrence: US)
  Receive Date: 20181220
  Receipt Date: 20181220
  Transmission Date: 20190205
  Serious: No
  Sender: FDA-Public Use
  Company Number: US-SA-2018SA388129

PATIENT
  Sex: Male

DRUGS (1)
  1. CAPZASIN HP ARTHRITIS PAIN RELIEF [Suspect]
     Active Substance: CAPSAICIN
     Route: 065

REACTIONS (4)
  - Drug ineffective [Unknown]
  - Erythema [Unknown]
  - Skin irritation [Unknown]
  - Swelling [Unknown]
